FAERS Safety Report 15440011 (Version 1)
Quarter: 2018Q3

REPORT INFORMATION
  Report Type: Spontaneous
  Country: US (occurrence: US)
  Receive Date: 20180925
  Receipt Date: 20180925
  Transmission Date: 20181010
  Serious: Yes (Hospitalization)
  Sender: FDA-Public Use
  Company Number: None

PATIENT
  Age: 53 Year
  Sex: Female

DRUGS (16)
  1. AMLODIPINE [Concomitant]
     Active Substance: AMLODIPINE BESYLATE
     Dates: start: 20180724
  2. DULOXETINE. [Concomitant]
     Active Substance: DULOXETINE
     Dates: start: 20180625
  3. ALPRAZOLAM. [Concomitant]
     Active Substance: ALPRAZOLAM
     Dates: start: 20180810
  4. MOBIC [Concomitant]
     Active Substance: MELOXICAM
     Dates: start: 20180311
  5. CYCLOBENZAPR [Concomitant]
     Active Substance: CYCLOBENZAPRINE
     Dates: start: 20150311
  6. LISINOPRIL AND HYDROCHLOROTHIAZIDE [Concomitant]
     Active Substance: HYDROCHLOROTHIAZIDE\LISINOPRIL
     Dates: start: 20180215
  7. ONDANSETRON [Concomitant]
     Active Substance: ONDANSETRON
     Dates: start: 20180724
  8. SULFASALAZINE DELAYED?RELEASE [Concomitant]
     Active Substance: SULFASALAZINE
     Dates: start: 20180603
  9. ENBREL [Suspect]
     Active Substance: ETANERCEPT
     Indication: RHEUMATOID ARTHRITIS
     Route: 058
     Dates: start: 20171012
  10. CYMBALTA [Concomitant]
     Active Substance: DULOXETINE HYDROCHLORIDE
     Dates: start: 20150209
  11. LOSARTAN/HCT [Concomitant]
     Active Substance: HYDROCHLOROTHIAZIDE\LOSARTAN POTASSIUM
     Dates: start: 20180910
  12. MELOXICAM. [Concomitant]
     Active Substance: MELOXICAM
     Dates: start: 20180628
  13. NIFEDIPINE. [Concomitant]
     Active Substance: NIFEDIPINE
     Dates: start: 20180215
  14. HYDROCO/APAP [Concomitant]
     Active Substance: ACETAMINOPHEN\HYDROCODONE
     Dates: start: 20150209
  15. IRBESARTAN. [Concomitant]
     Active Substance: IRBESARTAN
     Dates: start: 20180515
  16. LETROZOLE. [Concomitant]
     Active Substance: LETROZOLE
     Dates: start: 20180912

REACTIONS (3)
  - Road traffic accident [None]
  - Breast cancer [None]
  - Depression [None]
